FAERS Safety Report 15869232 (Version 3)
Quarter: 2019Q1

REPORT INFORMATION
  Report Type: Report from Study
  Country: DE (occurrence: DE)
  Receive Date: 20190125
  Receipt Date: 20190215
  Transmission Date: 20190417
  Serious: Yes (Death, Life-Threatening, Other)
  Sender: FDA-Public Use
  Company Number: PHHY2018DE192812

PATIENT
  Sex: Female
  Weight: 53 kg

DRUGS (2)
  1. LETROZOL ABZ [Concomitant]
     Active Substance: LETROZOLE
     Indication: BREAST CANCER METASTATIC
     Dosage: 2.5 MG, QD
     Route: 048
     Dates: start: 20181113
  2. KISQALI [Suspect]
     Active Substance: RIBOCICLIB
     Indication: BREAST CANCER METASTATIC
     Dosage: 600 MG, QD/3 WEEKS
     Route: 048
     Dates: start: 20181113, end: 20181213

REACTIONS (3)
  - Anaemia [Recovering/Resolving]
  - Leukopenia [Recovered/Resolved]
  - Hyperkalaemia [Fatal]

NARRATIVE: CASE EVENT DATE: 20181211
